FAERS Safety Report 8911703 (Version 1)
Quarter: 2012Q4

REPORT INFORMATION
  Report Type: 
  Country: DK (occurrence: DK)
  Receive Date: 20121116
  Receipt Date: 20121116
  Transmission Date: 20130627
  Serious: Yes (Hospitalization)
  Sender: FDA-Public Use
  Company Number: DK-INCYTE CORPORATION-2012IN002311

PATIENT
  Age: 44 Year
  Sex: Male

DRUGS (3)
  1. JAKAVI [Suspect]
     Indication: MYELOFIBROSIS
     Dosage: 20 mg, bid
     Dates: start: 20120814
  2. JAKAVI [Suspect]
     Dosage: 5 mg, bid
  3. MOXIFLOXACIN [Concomitant]

REACTIONS (1)
  - Diarrhoea [Unknown]
